FAERS Safety Report 9100398 (Version 1)
Quarter: 2013Q1

REPORT INFORMATION
  Report Type: Spontaneous
  Country: US (occurrence: US)
  Receive Date: 20130215
  Receipt Date: 20130215
  Transmission Date: 20140127
  Serious: Yes (Other)
  Sender: FDA-Public Use
  Company Number: US-TEVA-386014USA

PATIENT
  Sex: Female

DRUGS (2)
  1. ACTIQ [Suspect]
     Route: 048
  2. FENTANYL [Concomitant]

REACTIONS (8)
  - Drug withdrawal syndrome [Unknown]
  - Drug effect increased [Unknown]
  - Thermal burn [Unknown]
  - Dyspnoea [Unknown]
  - Tremor [Unknown]
  - Muscle twitching [Unknown]
  - Feeling of body temperature change [Unknown]
  - Paraesthesia [Unknown]
